FAERS Safety Report 8235229-8 (Version None)
Quarter: 2012Q1

REPORT INFORMATION
  Report Type: 
  Country: None (occurrence: None)
  Receive Date: 20120326
  Receipt Date: 20120322
  Transmission Date: 20120608
  Serious: Yes (Life-Threatening)
  Sender: FDA-Public Use
  Company Number: US-JNJFOC-20120305531

PATIENT
  Sex: Male
  Weight: 113.4 kg

DRUGS (3)
  1. NUCYNTA [Suspect]
     Indication: PAIN
     Dosage: 50 MG TABLETS  NDC 50458-0820-04
     Route: 048
     Dates: start: 20120307, end: 20120307
  2. ALESSE [Concomitant]
     Indication: CONTRACEPTION
     Route: 048
  3. HYDROCHLOROTHIAZIDE [Concomitant]
     Indication: NEPHROLITHIASIS
     Route: 048

REACTIONS (6)
  - PHARYNGEAL OEDEMA [None]
  - SPEECH DISORDER [None]
  - SWOLLEN TONGUE [None]
  - DROOLING [None]
  - DYSPNOEA [None]
  - DYSPHAGIA [None]
